FAERS Safety Report 6275438-0 (Version None)
Quarter: 2009Q3

REPORT INFORMATION
  Report Type: 
  Country: None (occurrence: None)
  Receive Date: 20090721
  Receipt Date: 20090716
  Transmission Date: 20100115
  Serious: Yes (Hospitalization)
  Sender: FDA-Public Use
  Company Number: ZA-ABBOTT-09P-143-0585620-00

PATIENT
  Sex: Male

DRUGS (1)
  1. EPILIM INJECTION [Suspect]
     Indication: STATUS EPILEPTICUS
     Route: 042

REACTIONS (2)
  - CEREBRAL INFARCTION [None]
  - DRUG LEVEL BELOW THERAPEUTIC [None]
